FAERS Safety Report 9938829 (Version 2)
Quarter: 2014Q1

REPORT INFORMATION
  Report Type: Report from Study
  Country: US (occurrence: US)
  Receive Date: 20140303
  Receipt Date: 20140303
  Transmission Date: 20141002
  Serious: No
  Sender: FDA-Public Use
  Company Number: US-ABBVIE-12P-163-0917243-00

PATIENT
  Age: 29 Year
  Sex: Female

DRUGS (5)
  1. HUMIRA 40 MG/0.8 ML PEN [Suspect]
     Indication: PSORIASIS
     Dates: start: 20111209
  2. PRILOSEC [Concomitant]
     Indication: ULCER
     Dosage: DAILY
  3. ZYRTEC [Concomitant]
     Indication: HYPERSENSITIVITY
     Dosage: DAILY
  4. PRENATAL VITAMINS [Concomitant]
     Indication: VITAMIN SUPPLEMENTATION
     Dosage: DAILY
  5. SAVELLA [Concomitant]
     Indication: FIBROMYALGIA
     Dosage: EVERY DAY

REACTIONS (7)
  - Respiratory tract congestion [Recovered/Resolved]
  - Cough [Recovered/Resolved]
  - Headache [Recovered/Resolved]
  - Decreased appetite [Not Recovered/Not Resolved]
  - Nausea [Recovered/Resolved]
  - Asthenia [Recovered/Resolved]
  - Pyrexia [Recovered/Resolved]
